FAERS Safety Report 10448330 (Version 3)
Quarter: 2014Q3

REPORT INFORMATION
  Report Type: Report from Study
  Country: CA (occurrence: CA)
  Receive Date: 20140911
  Receipt Date: 20140925
  Transmission Date: 20150326
  Serious: Yes (Death, Hospitalization, Other)
  Sender: FDA-Public Use
  Company Number: CA-ABBVIE-14P-028-1281211-00

PATIENT
  Age: 87 Year
  Sex: Male
  Weight: 72 kg

DRUGS (1)
  1. LUPRON DEPOT [Suspect]
     Active Substance: LEUPROLIDE ACETATE
     Indication: PROSTATE CANCER
     Route: 030
     Dates: start: 20130523

REACTIONS (5)
  - General physical health deterioration [Fatal]
  - Hip fracture [Not Recovered/Not Resolved]
  - Balance disorder [Unknown]
  - Fall [Recovered/Resolved]
  - Oedema [Unknown]

NARRATIVE: CASE EVENT DATE: 20140721
